FAERS Safety Report 20168314 (Version 1)
Quarter: 2021Q4

REPORT INFORMATION
  Report Type: Other
  Country: US (occurrence: None)
  Receive Date: 20211210
  Receipt Date: 20211210
  Transmission Date: 20220303
  Serious: Yes (Hospitalization)
  Sender: FDA-Public Use
  Company Number: US-ROCHE-2974614

PATIENT
  Sex: Male

DRUGS (4)
  1. ESBRIET [Suspect]
     Active Substance: PIRFENIDONE
     Indication: Pulmonary fibrosis
     Dosage: TAKE 3 TABLET(S) BY MOUTH 3 TIMES A DAY
     Route: 048
  2. ESBRIET [Suspect]
     Active Substance: PIRFENIDONE
     Indication: Blindness
  3. ESBRIET [Suspect]
     Active Substance: PIRFENIDONE
     Indication: Deafness
  4. ESBRIET [Suspect]
     Active Substance: PIRFENIDONE
     Indication: Blindness

REACTIONS (1)
  - Colon cancer [Unknown]
